FAERS Safety Report 9264943 (Version 1)
Quarter: 2013Q2

REPORT INFORMATION
  Report Type: Spontaneous
  Country: US (occurrence: US)
  Receive Date: 20130501
  Receipt Date: 20130501
  Transmission Date: 20140414
  Serious: Yes (Hospitalization)
  Sender: FDA-Public Use
  Company Number: US-BAYER-2013-052711

PATIENT
  Age: 16 Year
  Sex: Female
  Weight: 47.62 kg

DRUGS (11)
  1. YASMIN [Suspect]
     Indication: ACNE
  2. GIANVI [Suspect]
  3. YAZ [Suspect]
  4. CEPHALEXIN [Concomitant]
     Dosage: 500 MG, UNK
     Dates: start: 20100913, end: 20101127
  5. PROAIR HFA [Concomitant]
     Dosage: UNK
     Dates: start: 20101119
  6. TRETINOIN [Concomitant]
     Dosage: UNK
     Route: 061
     Dates: start: 20101119
  7. DOXYCYCLINE [Concomitant]
     Dosage: 100 MG, UNK
     Dates: start: 20101119
  8. AMITRIPTYLINE HCL [Concomitant]
     Dosage: 10 MG, UNK
     Dates: start: 20101119
  9. KEFLEX [Concomitant]
     Dosage: UNK
     Dates: start: 20101203
  10. ZYRTEC [Concomitant]
     Dosage: UNK
     Dates: start: 20101203
  11. MULTIVITAMIN AND MINERAL [Concomitant]

REACTIONS (3)
  - Subclavian vein thrombosis [Recovered/Resolved]
  - Axillary vein thrombosis [Recovered/Resolved]
  - Thrombophlebitis superficial [Recovered/Resolved]
